FAERS Safety Report 15964041 (Version 1)
Quarter: 2019Q1

REPORT INFORMATION
  Report Type: Report from Study
  Country: UA (occurrence: UA)
  Receive Date: 20190214
  Receipt Date: 20190214
  Transmission Date: 20190417
  Serious: Yes (Hospitalization, Other)
  Sender: FDA-Public Use
  Company Number: UA-SEATTLE GENETICS-2019SGN00304

PATIENT
  Age: 21 Year
  Sex: Female

DRUGS (1)
  1. BRENTUXIMAB VEDOTIN-MPI [Suspect]
     Active Substance: BRENTUXIMAB VEDOTIN
     Indication: HODGKIN^S DISEASE
     Dosage: UNK
     Route: 042
     Dates: start: 20181004

REACTIONS (6)
  - Malaise [Unknown]
  - Headache [Unknown]
  - Dizziness [Unknown]
  - Cerebrovascular accident [Recovering/Resolving]
  - Blood pressure increased [Unknown]
  - Hyperthermia [Recovering/Resolving]
